FAERS Safety Report 19175039 (Version 4)
Quarter: 2025Q4

REPORT INFORMATION
  Report Type: Report from Study
  Country: BR (occurrence: BR)
  Receive Date: 20210423
  Receipt Date: 20251127
  Transmission Date: 20260117
  Serious: Yes (Hospitalization, Other)
  Sender: TAKEDA
  Company Number: BR-TAKEDA-BR202029880

PATIENT
  Age: 54 Year
  Sex: Male
  Weight: 92 kg

DRUGS (10)
  1. ANTI-INHIBITOR COAGULANT COMPLEX [Suspect]
     Active Substance: ANTI-INHIBITOR COAGULANT COMPLEX
     Indication: Factor VIII deficiency
     Dosage: 7000 INTERNATIONAL UNIT, 3/WEEK
     Dates: start: 2002
  2. ANTI-INHIBITOR COAGULANT COMPLEX [Suspect]
     Active Substance: ANTI-INHIBITOR COAGULANT COMPLEX
     Dosage: 7000 INTERNATIONAL UNIT, 2/WEEK
     Dates: start: 2009
  3. ANTI-INHIBITOR COAGULANT COMPLEX [Suspect]
     Active Substance: ANTI-INHIBITOR COAGULANT COMPLEX
     Dosage: 7000 INTERNATIONAL UNIT, 3/WEEK
  4. ANTI-INHIBITOR COAGULANT COMPLEX [Suspect]
     Active Substance: ANTI-INHIBITOR COAGULANT COMPLEX
     Dosage: UNK UNK, 3/WEEK
  5. COAGULATION FACTOR VII HUMAN [Suspect]
     Active Substance: COAGULATION FACTOR VII HUMAN
     Indication: Product used for unknown indication
     Dosage: UNK
  6. ACETAMINOPHEN [Concomitant]
     Active Substance: ACETAMINOPHEN
     Indication: Pain
     Dosage: 50 MILLIGRAM
  7. OCTALBIN [Concomitant]
     Indication: Antiinflammatory therapy
     Dosage: 50 MILLIGRAM
  8. DIAZEPAM [Concomitant]
     Active Substance: DIAZEPAM
     Indication: Sleep disorder
     Dosage: 5 MILLIGRAM
  9. LOSARTAN AND HYDROCHLOROTHIAZIDE [Concomitant]
     Active Substance: HYDROCHLOROTHIAZIDE\LOSARTAN POTASSIUM
     Indication: Hypertension
     Dosage: 50 MILLIGRAM
  10. ACETAMINOPHEN [Concomitant]
     Active Substance: ACETAMINOPHEN
     Indication: Pain
     Dosage: 700 MILLIGRAM, Q6HR

REACTIONS (17)
  - Haemorrhage [Not Recovered/Not Resolved]
  - Drug ineffective [Unknown]
  - Swelling [Recovering/Resolving]
  - Spontaneous haemorrhage [Recovered/Resolved]
  - Contusion [Not Recovered/Not Resolved]
  - Haemarthrosis [Recovered/Resolved]
  - Incorrect dose administered [Unknown]
  - Vomiting [Unknown]
  - Fall [Recovering/Resolving]
  - Intentional product misuse [Unknown]
  - Dry skin [Recovering/Resolving]
  - Pain [Recovered/Resolved]
  - Dermatitis allergic [Unknown]
  - Pyrexia [Unknown]
  - Nausea [Unknown]
  - Mass [Unknown]
  - Skin exfoliation [Unknown]

NARRATIVE: CASE EVENT DATE: 20100101
